FAERS Safety Report 13446719 (Version 1)
Quarter: 2017Q2

REPORT INFORMATION
  Report Type: Spontaneous
  Country: US (occurrence: US)
  Receive Date: 20170414
  Receipt Date: 20170414
  Transmission Date: 20170830
  Serious: Yes (Hospitalization, Other)
  Sender: FDA-Public Use
  Company Number: None

PATIENT
  Age: 33 Year
  Sex: Female
  Weight: 99.79 kg

DRUGS (4)
  1. SYNTHROID [Concomitant]
     Active Substance: LEVOTHYROXINE SODIUM
  2. MIRENA [Suspect]
     Active Substance: LEVONORGESTREL
     Dates: start: 20170117, end: 20170410
  3. OTC PRENATAL VITAMIN [Concomitant]
  4. SINGULAIR [Concomitant]
     Active Substance: MONTELUKAST SODIUM

REACTIONS (13)
  - Feeling abnormal [None]
  - Balance disorder [None]
  - Chest discomfort [None]
  - Hypoaesthesia [None]
  - Fatigue [None]
  - Memory impairment [None]
  - Suppressed lactation [None]
  - Hypertension [None]
  - Depression [None]
  - Altered state of consciousness [None]
  - Chest pain [None]
  - Somnolence [None]
  - Pain in extremity [None]

NARRATIVE: CASE EVENT DATE: 20170330
